FAERS Safety Report 5574917-9 (Version None)
Quarter: 2007Q4

REPORT INFORMATION
  Report Type: 
  Country: None (occurrence: None)
  Receive Date: 20071227
  Receipt Date: 20071217
  Transmission Date: 20080405
  Serious: Yes (Hospitalization, Other)
  Sender: FDA-Public Use
  Company Number: A0515191A

PATIENT
  Age: 21 Year
  Sex: Female
  Weight: 63.6 kg

DRUGS (2)
  1. PAXIL CR [Suspect]
     Indication: ANXIETY
     Route: 048
     Dates: start: 20020702, end: 20020830
  2. RISPERDAL [Concomitant]
     Indication: IMPULSE-CONTROL DISORDER
     Dosage: 2MG AT NIGHT
     Route: 048
     Dates: start: 20020801

REACTIONS (25)
  - AGITATION [None]
  - ANGER [None]
  - ANOREXIA [None]
  - ANXIETY [None]
  - AVOIDANT PERSONALITY DISORDER [None]
  - EATING DISORDER [None]
  - EMOTIONAL DISORDER [None]
  - EMOTIONAL DISTRESS [None]
  - FEAR [None]
  - FEELING ABNORMAL [None]
  - HEAD BANGING [None]
  - IRRITABILITY [None]
  - MANIA [None]
  - NERVOUSNESS [None]
  - OBSESSIVE-COMPULSIVE DISORDER [None]
  - PAIN [None]
  - PANIC ATTACK [None]
  - SCAR [None]
  - SELF MUTILATION [None]
  - SLUGGISHNESS [None]
  - SPEECH DISORDER [None]
  - SUICIDAL BEHAVIOUR [None]
  - SUICIDAL IDEATION [None]
  - SUICIDE ATTEMPT [None]
  - WEIGHT DECREASED [None]
